FAERS Safety Report 5081334-7 (Version None)
Quarter: 2006Q3

REPORT INFORMATION
  Report Type: 
  Country: None (occurrence: None)
  Receive Date: 20060810
  Receipt Date: 20060726
  Transmission Date: 20061208
  Serious: Yes (Death)
  Sender: FDA-Public Use
  Company Number: 2006CT000632

PATIENT
  Age: 69 Year
  Sex: Male
  Weight: 65 kg

DRUGS (5)
  1. VENTAVIS [Suspect]
     Indication: PULMONARY HYPERTENSION
     Dosage: 5 UG; 3-5X/DAY; INH
     Route: 055
     Dates: start: 20060322
  2. LASIX [Concomitant]
  3. K-DUR 10 [Concomitant]
  4. TRACLEER [Concomitant]
  5. PREMARIN [Concomitant]

REACTIONS (4)
  - CONDITION AGGRAVATED [None]
  - GASTROINTESTINAL HAEMORRHAGE [None]
  - PULMONARY HYPERTENSION [None]
  - SCLERODERMA [None]
